FAERS Safety Report 24097812 (Version 4)
Quarter: 2024Q3

REPORT INFORMATION
  Report Type: Spontaneous
  Country: US (occurrence: US)
  Receive Date: 20240716
  Receipt Date: 20240918
  Transmission Date: 20241016
  Serious: No
  Sender: PFIZER
  Company Number: US-PFIZER INC-PV202400092814

PATIENT
  Age: 52 Year
  Sex: Female

DRUGS (1)
  1. XELJANZ [Suspect]
     Active Substance: TOFACITINIB CITRATE
     Dosage: 5 MG

REACTIONS (7)
  - Swelling [Unknown]
  - Condition aggravated [Unknown]
  - Infection [Unknown]
  - Headache [Unknown]
  - Ingrowing nail [Unknown]
  - Nail infection [Unknown]
  - Product dose omission in error [Unknown]
